FAERS Safety Report 7385284-2 (Version None)
Quarter: 2011Q1

REPORT INFORMATION
  Report Type: 
  Country: None (occurrence: None)
  Receive Date: 20110330
  Receipt Date: 20100406
  Transmission Date: 20110831
  Serious: No
  Sender: FDA-Public Use
  Company Number: US-MYLANLABS-2010S1005760

PATIENT
  Age: 65 Year
  Sex: Female

DRUGS (5)
  1. SAM-E [Concomitant]
     Indication: INSOMNIA
     Route: 048
  2. LYRICA [Concomitant]
     Indication: CONGENITAL NEUROPATHY
     Route: 048
  3. EMSAM [Suspect]
     Indication: DEPRESSION
     Route: 062
     Dates: start: 20100401
  4. 5-HTP [Concomitant]
     Indication: INSOMNIA
     Route: 048
  5. CLONAZEPAM [Concomitant]
     Indication: INSOMNIA
     Route: 048

REACTIONS (1)
  - DRY MOUTH [None]
